FAERS Safety Report 8917177 (Version 1)
Quarter: 2012Q4

REPORT INFORMATION
  Report Type: 
  Country: US (occurrence: US)
  Receive Date: 20121120
  Receipt Date: 20121120
  Transmission Date: 20130627
  Serious: Yes (Disabling)
  Sender: FDA-Public Use
  Company Number: US-PFIZER INC-2012289793

PATIENT
  Age: 38 Year
  Sex: Male
  Weight: 118 kg

DRUGS (3)
  1. EFFEXOR XR [Suspect]
     Indication: STRESS
     Dosage: UNK (150mg or 75mg), daily
     Dates: start: 2008
  2. METOPROLOL [Concomitant]
     Indication: BLOOD PRESSURE HIGH
     Dosage: 100 mg, 2x/day
  3. CLONIDINE [Concomitant]
     Indication: BLOOD PRESSURE HIGH
     Dosage: 0.2 mg, 2x/day

REACTIONS (2)
  - Rotator cuff syndrome [Not Recovered/Not Resolved]
  - Joint injury [Unknown]
